FAERS Safety Report 17815604 (Version 1)
Quarter: 2020Q2

REPORT INFORMATION
  Report Type: Spontaneous
  Country: US (occurrence: US)
  Receive Date: 20200521
  Receipt Date: 20200521
  Transmission Date: 20200714
  Serious: Yes (Hospitalization)
  Sender: FDA-Public Use
  Company Number: None

PATIENT
  Age: 74 Year
  Sex: Female

DRUGS (31)
  1. HYDROXYCHLOR [Concomitant]
     Active Substance: HYDROXYCHLOROQUINE
  2. MORPHINE [Concomitant]
     Active Substance: MORPHINE
  3. VITAMIN D [Concomitant]
     Active Substance: VITAMIN D NOS
  4. ZETIA [Concomitant]
     Active Substance: EZETIMIBE
  5. DEXILANT [Concomitant]
     Active Substance: DEXLANSOPRAZOLE
  6. FLUOXETINE [Concomitant]
     Active Substance: FLUOXETINE HYDROCHLORIDE
  7. NAC [ACETYLCYSTEINE] [Concomitant]
     Active Substance: ACETYLCYSTEINE
  8. PREDNISONE. [Concomitant]
     Active Substance: PREDNISONE
  9. UPTRAVI [Concomitant]
     Active Substance: SELEXIPAG
  10. ALPHAGAN P [Concomitant]
     Active Substance: BRIMONIDINE TARTRATE
  11. IPRATROPIUM [Concomitant]
     Active Substance: IPRATROPIUM
  12. OXYCODONE [Concomitant]
     Active Substance: OXYCODONE
  13. AZOPT [Concomitant]
     Active Substance: BRINZOLAMIDE
  14. LEVOTHYROXIN [Concomitant]
     Active Substance: LEVOTHYROXINE
  15. SUCRALFATE. [Concomitant]
     Active Substance: SUCRALFATE
  16. BABY ASPIRIN [Concomitant]
     Active Substance: ASPIRIN
  17. NORVASC [Concomitant]
     Active Substance: AMLODIPINE BESYLATE
  18. PLAQUE NIL [Concomitant]
  19. POTASSIUM [Concomitant]
     Active Substance: POTASSIUM
  20. LETAIRIS [Suspect]
     Active Substance: AMBRISENTAN
     Indication: PULMONARY HYPERTENSION
     Route: 048
     Dates: start: 20140415
  21. AMLODIPINE [Concomitant]
     Active Substance: AMLODIPINE BESYLATE
  22. CARAFATE [Concomitant]
     Active Substance: SUCRALFATE
  23. GABAPENTIN. [Concomitant]
     Active Substance: GABAPENTIN
  24. POT CHLORIDE [Concomitant]
     Active Substance: POTASSIUM CHLORIDE
  25. PROTONIX [Concomitant]
     Active Substance: PANTOPRAZOLE SODIUM
  26. REMODULIN [Concomitant]
     Active Substance: TREPROSTINIL
  27. TRAZODONE [Concomitant]
     Active Substance: TRAZODONE HYDROCHLORIDE
  28. ESTRADIOL. [Concomitant]
     Active Substance: ESTRADIOL
  29. LASIX [Concomitant]
     Active Substance: FUROSEMIDE
  30. MYCOPHENOLATE [Concomitant]
     Active Substance: MYCOPHENOLIC ACID
  31. TYLENOL [Concomitant]
     Active Substance: ACETAMINOPHEN

REACTIONS (1)
  - Lung disorder [None]

NARRATIVE: CASE EVENT DATE: 20200115
